FAERS Safety Report 4528855-0 (Version None)
Quarter: 2004Q4

REPORT INFORMATION
  Report Type: 
  Country: None (occurrence: None)
  Receive Date: 20041214
  Receipt Date: 20041130
  Transmission Date: 20050328
  Serious: Yes (Disabling)
  Sender: FDA-Public Use
  Company Number: 2004-CN-00610CN

PATIENT
  Age: 66 Year
  Sex: Female

DRUGS (1)
  1. MICARDIS [Suspect]
     Indication: HYPERTENSION
     Dosage: 80 MG PO
     Route: 048
     Dates: start: 20041116

REACTIONS (2)
  - DYSPNOEA [None]
  - OROPHARYNGEAL SWELLING [None]
